FAERS Safety Report 21763826 (Version 2)
Quarter: 2023Q2

REPORT INFORMATION
  Report Type: Spontaneous
  Country: US (occurrence: US)
  Receive Date: 20221222
  Receipt Date: 20230406
  Transmission Date: 20230721
  Serious: Yes (Hospitalization, Other)
  Sender: FDA-Public Use
  Company Number: US-BRISTOL-MYERS SQUIBB COMPANY-2022-156244

PATIENT
  Age: 67 Year
  Sex: Male
  Weight: 64.86 kg

DRUGS (1)
  1. ELIQUIS [Suspect]
     Active Substance: APIXABAN
     Indication: Thrombosis prophylaxis
     Route: 048

REACTIONS (5)
  - Pulmonary thrombosis [Unknown]
  - Product dose omission issue [Unknown]
  - Osteoarthritis [Unknown]
  - Thrombosis [Unknown]
  - Treatment noncompliance [Unknown]
